FAERS Safety Report 10358759 (Version 1)
Quarter: 2014Q3

REPORT INFORMATION
  Report Type: Report from Study
  Country: US (occurrence: US)
  Receive Date: 20140804
  Receipt Date: 20140804
  Transmission Date: 20150326
  Serious: Yes (Other)
  Sender: FDA-Public Use
  Company Number: US-ASTRAZENECA-2014SE53360

PATIENT
  Age: 71 Year
  Sex: Female
  Weight: 130.6 kg

DRUGS (16)
  1. WARFARIN [Concomitant]
     Active Substance: WARFARIN
     Indication: ANTICOAGULANT THERAPY
     Dosage: 7.5 MG ON MONDAY, WEDNESDAY AND FRIDAY
  2. LISINOPRIL. [Suspect]
     Active Substance: LISINOPRIL
     Indication: BLOOD PRESSURE ABNORMAL
     Route: 048
  3. METOPROLOL SUCCINATE ER (NON-AZ PRODUCT) [Suspect]
     Active Substance: METOPROLOL SUCCINATE
     Indication: CARDIAC DISORDER
     Dosage: MANUFACTURED BY WATSON
     Route: 065
     Dates: start: 2006
  4. MORPHINE (NON-AZ PRODUCT) [Suspect]
     Active Substance: MORPHINE
     Route: 065
  5. ISOSORBIDE MONO ER [Concomitant]
     Indication: CARDIAC DISORDER
     Dates: start: 2007
  6. GLIPIZIDE. [Concomitant]
     Active Substance: GLIPIZIDE
     Indication: DIABETES MELLITUS
     Dosage: BID
     Dates: end: 2014
  7. LEVOTHYROXINE [Concomitant]
     Active Substance: LEVOTHYROXINE
     Indication: THYROID DISORDER
     Dates: start: 201407
  8. CRESTOR [Suspect]
     Active Substance: ROSUVASTATIN CALCIUM
     Indication: BLOOD CHOLESTEROL ABNORMAL
     Route: 048
     Dates: end: 20140719
  9. GABAPENTIN. [Concomitant]
     Active Substance: GABAPENTIN
     Indication: BACK PAIN
     Dates: start: 2011
  10. FUROSEMIDE. [Concomitant]
     Active Substance: FUROSEMIDE
     Indication: CARDIAC FAILURE CONGESTIVE
     Dates: start: 1995
  11. GABAPENTIN. [Concomitant]
     Active Substance: GABAPENTIN
     Indication: NEURALGIA
     Dates: start: 2011
  12. WARFARIN [Concomitant]
     Active Substance: WARFARIN
     Indication: ANTICOAGULANT THERAPY
     Dosage: 5 MG ON TUESDAY, THURSDAY, SATURDAY AND SUNDAY
  13. NOVOLIN 70 OVER 30 INSULIN [Concomitant]
     Indication: DIABETES MELLITUS
     Dosage: 32 UNITS IN THE MORNING AND 32 UNITS IN THE EVENING
  14. LEVOTHYROXINE [Concomitant]
     Active Substance: LEVOTHYROXINE
     Indication: THYROID DISORDER
  15. METFORMIN [Concomitant]
     Active Substance: METFORMIN HYDROCHLORIDE
     Indication: DIABETES MELLITUS
     Dates: start: 2007
  16. SPIRONOLACTONE. [Concomitant]
     Active Substance: SPIRONOLACTONE
     Indication: DIURETIC THERAPY

REACTIONS (5)
  - Hypersensitivity [Unknown]
  - Thyroid disorder [Unknown]
  - Pulmonary embolism [Unknown]
  - Cardiomyopathy [Unknown]
  - Drug dose omission [Unknown]

NARRATIVE: CASE EVENT DATE: 20140719
